FAERS Safety Report 12212308 (Version 1)
Quarter: 2016Q1

REPORT INFORMATION
  Report Type: Other
  Country: US (occurrence: US)
  Receive Date: 20160325
  Receipt Date: 20160325
  Transmission Date: 20160526
  Serious: No
  Sender: FDA-Public Use
  Company Number: US-DEP_02544_2015

PATIENT
  Sex: Male

DRUGS (3)
  1. GRALISE [Suspect]
     Active Substance: GABAPENTIN
     Indication: CERVICAL SPINAL STENOSIS
     Dosage: TITRATED UP TO 1200 MG DAILY
     Route: 048
     Dates: start: 201401, end: 201401
  2. GRALISE [Suspect]
     Active Substance: GABAPENTIN
     Indication: OFF LABEL USE
     Route: 048
     Dates: start: 201401
  3. GRALISE [Suspect]
     Active Substance: GABAPENTIN
     Indication: PAIN
     Dosage: TITRATED UP TO 1200 MG DAILY
     Route: 048
     Dates: start: 201401, end: 201401

REACTIONS (1)
  - Dizziness [Unknown]

NARRATIVE: CASE EVENT DATE: 201401
